FAERS Safety Report 18122311 (Version 1)
Quarter: 2020Q3

REPORT INFORMATION
  Report Type: Report from Study
  Country: FR (occurrence: FR)
  Receive Date: 20200807
  Receipt Date: 20200807
  Transmission Date: 20201103
  Serious: Yes (Other)
  Sender: FDA-Public Use
  Company Number: FR-AUROBINDO-AUR-APL-2019-053768

PATIENT
  Age: 3 Year
  Sex: Male

DRUGS (1)
  1. CETIRIZINE [Suspect]
     Active Substance: CETIRIZINE HYDROCHLORIDE
     Indication: PRODUCT USED FOR UNKNOWN INDICATION
     Dosage: 4 DOSAGE FORM,3.60 MG/KG (FOUR 10 MG TABLETS)
     Route: 048

REACTIONS (4)
  - Toxicity to various agents [Unknown]
  - Accidental overdose [Unknown]
  - Restlessness [Unknown]
  - Hallucination [Unknown]
